FAERS Safety Report 6208768-9 (Version None)
Quarter: 2009Q2

REPORT INFORMATION
  Report Type: 
  Country: None (occurrence: None)
  Receive Date: 20090522
  Receipt Date: 20090210
  Transmission Date: 20091009
  Serious: No
  Sender: FDA-Public Use
  Company Number: 8042826

PATIENT
  Age: 38 Year
  Sex: Female
  Weight: 77.2 kg

DRUGS (2)
  1. CIMZIA [Suspect]
     Indication: CROHN'S DISEASE
     Dosage: 400 MG SC
     Route: 058
     Dates: start: 20090206
  2. FLAGYL [Concomitant]

REACTIONS (7)
  - EAR PAIN [None]
  - ECZEMA [None]
  - OROPHARYNGEAL PAIN [None]
  - PILOERECTION [None]
  - PRURITUS [None]
  - RASH [None]
  - URINARY TRACT INFECTION [None]
